FAERS Safety Report 8951710 (Version 2)
Quarter: 2014Q4

REPORT INFORMATION
  Report Type: Spontaneous
  Country: US (occurrence: US)
  Receive Date: 20121204
  Receipt Date: 20141224
  Transmission Date: 20150529
  Serious: No
  Sender: FDA-Public Use
  Company Number: US-ASTRAZENECA-2012SE80579

PATIENT
  Age: 606 Month
  Sex: Female

DRUGS (1)
  1. NEXIUM [Suspect]
     Active Substance: ESOMEPRAZOLE MAGNESIUM
     Route: 048
     Dates: end: 201410

REACTIONS (5)
  - Drug dose omission [Unknown]
  - Irritable bowel syndrome [Unknown]
  - Dyspepsia [Unknown]
  - Throat irritation [Unknown]
  - Chest pain [Unknown]

NARRATIVE: CASE EVENT DATE: 201410
